FAERS Safety Report 8931227 (Version 2)
Quarter: 2012Q4

REPORT INFORMATION
  Report Type: 
  Country: US (occurrence: US)
  Receive Date: 20121121
  Receipt Date: 20121212
  Transmission Date: 20130627
  Serious: Yes (Death)
  Sender: FDA-Public Use
  Company Number: US-ASTELLAS-1106081

PATIENT
  Sex: Male

DRUGS (3)
  1. TARCEVA [Suspect]
     Indication: MALIGNANT RESPIRATORY TRACT NEOPLASM
     Route: 048
     Dates: end: 20060921
  2. TAXOL [Concomitant]
     Route: 065
     Dates: start: 20060726
  3. AVASTIN [Concomitant]
     Route: 065
     Dates: start: 20060726

REACTIONS (2)
  - Bronchospasm [Fatal]
  - Cardio-respiratory arrest [Fatal]
